FAERS Safety Report 6181486-1 (Version None)
Quarter: 2009Q2

REPORT INFORMATION
  Report Type: 
  Country: None (occurrence: None)
  Receive Date: 20090501
  Receipt Date: 20090420
  Transmission Date: 20091009
  Serious: Yes (Other)
  Sender: FDA-Public Use
  Company Number: 1000006034

PATIENT
  Sex: Male

DRUGS (2)
  1. MEMANTINE HCL [Suspect]
     Dosage: ORAL
     Route: 048
  2. FLECAINIDE ACETATE [Suspect]

REACTIONS (1)
  - CARDIAC PACEMAKER MALFUNCTION [None]
